FAERS Safety Report 17301350 (Version 1)
Quarter: 2020Q1

REPORT INFORMATION
  Report Type: Spontaneous
  Country: US (occurrence: US)
  Receive Date: 20200122
  Receipt Date: 20200122
  Transmission Date: 20200409
  Serious: Yes (Death, Hospitalization)
  Sender: FDA-Public Use
  Company Number: US-UCBSA-2020002475

PATIENT
  Age: 83 Year
  Sex: Male

DRUGS (3)
  1. COUMADIN [Concomitant]
     Active Substance: WARFARIN SODIUM
     Indication: PRODUCT USED FOR UNKNOWN INDICATION
  2. NEUPRO [Suspect]
     Active Substance: ROTIGOTINE
     Indication: RESTLESS LEGS SYNDROME
     Dosage: 1 MILLIGRAM, ONCE DAILY (QD)
     Route: 062
     Dates: start: 20130628, end: 20130629
  3. BENADRYL [Suspect]
     Active Substance: DIPHENHYDRAMINE HYDROCHLORIDE
     Indication: PRODUCT USED FOR UNKNOWN INDICATION
     Dosage: 50 MG
     Dates: start: 2013

REACTIONS (9)
  - Dysarthria [Unknown]
  - Fall [Unknown]
  - Pneumonia [Unknown]
  - Confusional state [Unknown]
  - Sensory disturbance [Unknown]
  - Death [Fatal]
  - Myocardial infarction [Unknown]
  - Condition aggravated [Unknown]
  - Movement disorder [Unknown]

NARRATIVE: CASE EVENT DATE: 2013
